FAERS Safety Report 23845996 (Version 1)
Quarter: 2024Q2

REPORT INFORMATION
  Report Type: Spontaneous
  Country: US (occurrence: US)
  Receive Date: 20240512
  Receipt Date: 20240512
  Transmission Date: 20240716
  Serious: Yes (Hospitalization, Other)
  Sender: FDA-Public Use
  Company Number: US-SA-SAC20240508001610

PATIENT
  Age: 57 Year
  Sex: Female

DRUGS (1)
  1. DUPIXENT [Suspect]
     Active Substance: DUPILUMAB
     Indication: Neurodermatitis
     Dosage: 300 MG, QOW
     Route: 058
     Dates: start: 202402

REACTIONS (7)
  - Chronic obstructive pulmonary disease [Unknown]
  - Acute respiratory failure [Unknown]
  - Pain in extremity [Unknown]
  - Abdominal pain upper [Unknown]
  - Pruritus [Unknown]
  - Back pain [Unknown]
  - Therapeutic response decreased [Unknown]
